FAERS Safety Report 6601068-4 (Version None)
Quarter: 2010Q1

REPORT INFORMATION
  Report Type: 
  Country: None (occurrence: None)
  Receive Date: 20100224
  Receipt Date: 20100224
  Transmission Date: 20100710
  Serious: Yes (Disabling, Other)
  Sender: FDA-Public Use
  Company Number: None

PATIENT
  Sex: Female
  Weight: 48.5349 kg

DRUGS (1)
  1. LEVOTHYROXINE SODIUM [Suspect]
     Indication: HYPOTHYROIDISM
     Dosage: 1 TABLET EVERY DAY 2 TABLET ON SUNDAY
     Dates: start: 20090301, end: 20100101

REACTIONS (11)
  - ALOPECIA [None]
  - EYE PAIN [None]
  - FLUSHING [None]
  - HAIR TEXTURE ABNORMAL [None]
  - HEADACHE [None]
  - HYPERHIDROSIS [None]
  - NAUSEA [None]
  - PARAESTHESIA [None]
  - PRURITUS [None]
  - TREMOR [None]
  - WEIGHT DECREASED [None]
